FAERS Safety Report 6681272-X (Version None)
Quarter: 2010Q2

REPORT INFORMATION
  Report Type: 
  Country: None (occurrence: None)
  Receive Date: 20100413
  Receipt Date: 20100413
  Transmission Date: 20101027
  Serious: Yes (Hospitalization)
  Sender: FDA-Public Use
  Company Number: None

PATIENT
  Age: 57 Year
  Sex: Male
  Weight: 65.7716 kg

DRUGS (1)
  1. PRISTIQ [Suspect]

REACTIONS (12)
  - AGGRESSION [None]
  - ANGER [None]
  - ASTHENIA [None]
  - CHILLS [None]
  - DISCOMFORT [None]
  - DIZZINESS [None]
  - DRUG INEFFECTIVE [None]
  - HEADACHE [None]
  - HYPERHIDROSIS [None]
  - INSOMNIA [None]
  - PERSONALITY CHANGE [None]
  - PYREXIA [None]
